FAERS Safety Report 4355905-7 (Version None)
Quarter: 2004Q2

REPORT INFORMATION
  Report Type: 
  Country: None (occurrence: None)
  Receive Date: 20040507
  Receipt Date: 20040423
  Transmission Date: 20050107
  Serious: No
  Sender: FDA-Public Use
  Company Number: 7878

PATIENT
  Age: 63 Year
  Sex: Male
  Weight: 90 kg

DRUGS (8)
  1. ACYCLOVIR [Suspect]
     Indication: PROPHYLAXIS
     Dosage: 400 MG DAILY PO
     Route: 048
     Dates: start: 20020501, end: 20030718
  2. FLUCONAZOLE [Suspect]
     Indication: PROPHYLAXIS
     Dosage: 50 MG DAILY PO
     Route: 048
     Dates: start: 20020501, end: 20030718
  3. MABCAMPATH [Suspect]
     Indication: CHRONIC LYMPHOCYTIC LEUKAEMIA
     Dosage: 30 MG 3/WK IV
     Route: 042
     Dates: start: 20030409, end: 20030725
  4. CIPROFLOXACIN [Suspect]
     Indication: PROPHYLAXIS
     Dosage: 500 MG BID PO
     Route: 048
     Dates: start: 20030430, end: 20030718
  5. ALLOPURINOL TAB [Suspect]
     Indication: PROPHYLAXIS
     Dosage: 300 MG DAILY PO
     Route: 048
     Dates: start: 20030409, end: 20030718
  6. DESLORATADINE [Concomitant]
  7. ADCORTYL [Concomitant]
  8. AMOXICILLIN AND CLAVULANATE POTASSIUM [Concomitant]

REACTIONS (1)
  - LOCALISED EXFOLIATION [None]
